FAERS Safety Report 10671133 (Version 2)
Quarter: 2015Q1

REPORT INFORMATION
  Report Type: Spontaneous
  Country: US (occurrence: US)
  Receive Date: 20141223
  Receipt Date: 20150225
  Transmission Date: 20150720
  Serious: Yes (Hospitalization)
  Sender: FDA-Public Use
  Company Number: US-BAYER-2014-187910

PATIENT
  Age: 26 Year
  Sex: Female
  Weight: 54.42 kg

DRUGS (1)
  1. MIRENA [Suspect]
     Active Substance: LEVONORGESTREL
     Indication: CONTRACEPTION
     Dosage: 20 MCG/24HR, CONT
     Route: 015
     Dates: start: 201103, end: 20140124

REACTIONS (6)
  - Injury [None]
  - Abdominal discomfort [None]
  - Uterine perforation [None]
  - Abdominal pain [None]
  - Procedural pain [Not Recovered/Not Resolved]
  - Post procedural discomfort [Not Recovered/Not Resolved]

NARRATIVE: CASE EVENT DATE: 2013
